FAERS Safety Report 10707568 (Version 1)
Quarter: 2015Q1

REPORT INFORMATION
  Report Type: Spontaneous
  Country: US (occurrence: None)
  Receive Date: 20150112
  Receipt Date: 20150112
  Transmission Date: 20150721
  Serious: No
  Sender: FDA-Public Use
  Company Number: None

PATIENT
  Age: 4 Year
  Sex: Male
  Weight: 13.61 kg

DRUGS (1)
  1. MIRALAX [Suspect]
     Active Substance: POLYETHYLENE GLYCOL 3350
     Indication: CONSTIPATION
     Dosage: 1/2 CAP ONCE DAILY TAKEN BY MOUTH
     Route: 048
     Dates: start: 20130601, end: 20130801

REACTIONS (4)
  - Feeling abnormal [None]
  - Anger [None]
  - Urinary incontinence [None]
  - Abnormal behaviour [None]

NARRATIVE: CASE EVENT DATE: 20130601
